FAERS Safety Report 21518229 (Version 2)
Quarter: 2023Q4

REPORT INFORMATION
  Report Type: Report from Study
  Country: US (occurrence: US)
  Receive Date: 20221028
  Receipt Date: 20231206
  Transmission Date: 20240110
  Serious: Yes (Death, Other)
  Sender: FDA-Public Use
  Company Number: US-TAKEDA-2022TUS070536

PATIENT
  Age: 77 Year
  Sex: Male

DRUGS (1)
  1. MARIBAVIR [Suspect]
     Active Substance: MARIBAVIR
     Indication: Cytomegalovirus infection
     Dosage: 400 MILLIGRAM, BID
     Route: 048
     Dates: start: 20221003, end: 20221006

REACTIONS (13)
  - Death [Fatal]
  - Choking [Unknown]
  - Cough [Unknown]
  - Blood test abnormal [Unknown]
  - Haemoglobin abnormal [Unknown]
  - Haematocrit abnormal [Unknown]
  - Asthenia [Unknown]
  - Dyspnoea exertional [Unknown]
  - Feeling abnormal [Unknown]
  - Anaemia [Unknown]
  - Fatigue [Unknown]
  - Dysgeusia [Unknown]
  - Nausea [Unknown]

NARRATIVE: CASE EVENT DATE: 20221214
